FAERS Safety Report 5128906-9 (Version None)
Quarter: 2006Q4

REPORT INFORMATION
  Report Type: 
  Country: None (occurrence: None)
  Receive Date: 20061011
  Receipt Date: 20060929
  Transmission Date: 20070319
  Serious: Yes (Hospitalization, Other)
  Sender: FDA-Public Use
  Company Number: HQWYE782021AUG06

PATIENT
  Age: 58 Year
  Sex: Male

DRUGS (4)
  1. PROGRAF [Suspect]
     Indication: PROPHYLAXIS AGAINST TRANSPLANT REJECTION
     Dosage: 6 MG 2X PER 1 DAY, ORAL
     Route: 048
     Dates: start: 20050606, end: 20060110
  2. ZENAPAX [Concomitant]
  3. MYCOPHENOLATE MOFETIL [Concomitant]
  4. PREDNISONE TAB [Concomitant]

REACTIONS (7)
  - ATROPHY [None]
  - CYTOMEGALOVIRUS INFECTION [None]
  - HEPATIC ENZYME INCREASED [None]
  - IMMUNOSUPPRESSION [None]
  - METASTASES TO LYMPH NODES [None]
  - METASTASES TO URINARY TRACT [None]
  - METASTATIC RENAL CELL CARCINOMA [None]
